FAERS Safety Report 20044518 (Version 2)
Quarter: 2022Q3

REPORT INFORMATION
  Report Type: Report from Study
  Country: US (occurrence: US)
  Receive Date: 20211108
  Receipt Date: 20220808
  Transmission Date: 20221027
  Serious: Yes (Hospitalization, Other)
  Sender: FDA-Public Use
  Company Number: US-TAKEDA-US201915513

PATIENT
  Age: 62 Year
  Sex: Male

DRUGS (2)
  1. HUMAN IMMUNOGLOBULIN G [Suspect]
     Active Substance: HUMAN IMMUNOGLOBULIN G
     Indication: Immunodeficiency common variable
     Dosage: 38 GRAM, Q4WEEKS
     Route: 042
  2. HUMAN IMMUNOGLOBULIN G [Suspect]
     Active Substance: HUMAN IMMUNOGLOBULIN G
     Indication: Primary immunodeficiency syndrome

REACTIONS (8)
  - Injury [Unknown]
  - Sinusitis [Unknown]
  - Pneumonia [Unknown]
  - Staphylococcal infection [Unknown]
  - Hepatic failure [Unknown]
  - Renal failure [Unknown]
  - Conjunctivitis [Unknown]
  - Infection [Unknown]

NARRATIVE: CASE EVENT DATE: 20220601
